FAERS Safety Report 24100728 (Version 1)
Quarter: 2024Q3

REPORT INFORMATION
  Report Type: Spontaneous
  Country: US (occurrence: US)
  Receive Date: 20240717
  Receipt Date: 20240717
  Transmission Date: 20241017
  Serious: No
  Sender: NOVO NORDISK
  Company Number: US-NOVOPROD-1223755

PATIENT
  Age: 50 Year
  Sex: Male

DRUGS (3)
  1. OZEMPIC [Suspect]
     Active Substance: SEMAGLUTIDE
     Indication: Type 2 diabetes mellitus
     Dosage: FROM 0.5MG INCREASED TO 1 MG
     Route: 058
     Dates: start: 20240423
  2. OZEMPIC [Suspect]
     Active Substance: SEMAGLUTIDE
     Indication: Hyperlipidaemia
  3. OZEMPIC [Suspect]
     Active Substance: SEMAGLUTIDE
     Indication: Hypertension
     Dosage: 1 MG, QW
     Route: 058
     Dates: end: 20240509

REACTIONS (1)
  - Skin sensitisation [Recovered/Resolved]

NARRATIVE: CASE EVENT DATE: 20240507
